FAERS Safety Report 9387043 (Version 1)
Quarter: 2013Q3

REPORT INFORMATION
  Report Type: Spontaneous
  Country: US (occurrence: None)
  Receive Date: 20130703
  Receipt Date: 20130703
  Transmission Date: 20140515
  Serious: No
  Sender: FDA-Public Use
  Company Number: None

PATIENT
  Age: 28 Year
  Sex: Female
  Weight: 52.16 kg

DRUGS (2)
  1. AMPHETAMINE [Suspect]
     Indication: NARCOLEPSY
     Dosage: 30 MG CMPD TABS TWICE DAILY PO
     Route: 048
     Dates: start: 20130617, end: 20130702
  2. AMPHETAMINE [Suspect]
     Indication: ATTENTION DEFICIT/HYPERACTIVITY DISORDER
     Dosage: 30 MG CMPD TABS TWICE DAILY PO
     Route: 048
     Dates: start: 20130617, end: 20130702

REACTIONS (3)
  - Drug ineffective [None]
  - Somnolence [None]
  - Product substitution issue [None]
